FAERS Safety Report 16069211 (Version 3)
Quarter: 2019Q1

REPORT INFORMATION
  Report Type: Spontaneous
  Country: US (occurrence: US)
  Receive Date: 20190313
  Receipt Date: 20190326
  Transmission Date: 20190418
  Serious: No
  Sender: FDA-Public Use
  Company Number: US-ALLERGAN-1910715US

PATIENT
  Sex: Female

DRUGS (2)
  1. CORTICOSTEROIDS [Concomitant]
     Active Substance: CORTICOSTEROID NOS
     Indication: DRY EYE
     Route: 047
  2. REFRESH TEARS [Suspect]
     Active Substance: CARBOXYMETHYLCELLULOSE SODIUM
     Indication: DRY EYE
     Dosage: 10 - 20 TIMES PER DAY OR MORE, QHS
     Route: 047
     Dates: start: 1998

REACTIONS (5)
  - Drug ineffective [Unknown]
  - Product use complaint [Unknown]
  - Product container issue [Unknown]
  - Visual impairment [Not Recovered/Not Resolved]
  - Cataract [Recovered/Resolved]
